FAERS Safety Report 19134046 (Version 1)
Quarter: 2021Q2

REPORT INFORMATION
  Report Type: Spontaneous
  Country: US (occurrence: US)
  Receive Date: 20210414
  Receipt Date: 20210414
  Transmission Date: 20210717
  Serious: Yes (Other)
  Sender: FDA-Public Use
  Company Number: None

PATIENT
  Age: 57 Year
  Sex: Female
  Weight: 81.9 kg

DRUGS (9)
  1. LEVOTHYROXINE. [Concomitant]
     Active Substance: LEVOTHYROXINE
  2. QUAR [Concomitant]
     Active Substance: BECLOMETHASONE DIPROPIONATE
  3. SINGULAIR [Concomitant]
     Active Substance: MONTELUKAST SODIUM
  4. MVI [Concomitant]
     Active Substance: VITAMINS
  5. ZYRTEC [Suspect]
     Active Substance: CETIRIZINE HYDROCHLORIDE
     Indication: HYPERSENSITIVITY
     Route: 048
  6. ANDREA ELIPTA [Concomitant]
  7. PROBIOTIC [Concomitant]
     Active Substance: PROBIOTICS NOS
  8. BABY ASA [Concomitant]
     Active Substance: ASPIRIN
  9. GINGKO [Concomitant]
     Active Substance: GINKGO

REACTIONS (1)
  - Pruritus [None]

NARRATIVE: CASE EVENT DATE: 20210401
